FAERS Safety Report 12461084 (Version 1)
Quarter: 2016Q2

REPORT INFORMATION
  Report Type: Spontaneous
  Country: US (occurrence: US)
  Receive Date: 20160613
  Receipt Date: 20160613
  Transmission Date: 20160815
  Serious: No
  Sender: FDA-Public Use
  Company Number: US-ALLERGAN-1523472US

PATIENT
  Age: 52 Year
  Sex: Female

DRUGS (1)
  1. KYBELLA [Suspect]
     Active Substance: DEOXYCHOLIC ACID
     Indication: FAT TISSUE INCREASED
     Dosage: 4 ML, UNK
     Route: 058
     Dates: start: 20150722, end: 20150722

REACTIONS (2)
  - Nodule [Not Recovered/Not Resolved]
  - Injection site mass [Not Recovered/Not Resolved]

NARRATIVE: CASE EVENT DATE: 20150722
